FAERS Safety Report 8618646-3 (Version None)
Quarter: 2012Q3

REPORT INFORMATION
  Report Type: 
  Country: None (occurrence: None)
  Receive Date: 20120814
  Receipt Date: 20120814
  Transmission Date: 20120928
  Serious: Yes (Death)
  Sender: FDA-Public Use
  Company Number: None

PATIENT
  Age: 85 Year
  Sex: Male
  Weight: 63.49 kg

DRUGS (2)
  1. DEXTRAN 40 10% IN DEXTROSE 5% [Suspect]
     Indication: PREOPERATIVE CARE
     Dosage: 10% 500 ML ONCE PRIOR TO CASE IV DRIP
     Route: 041
     Dates: start: 20120806, end: 20120806
  2. DEXTRAN 40 10% IN DEXTROSE 5% [Suspect]
     Indication: INFUSION
     Dosage: 10% 500 ML ONCE PRIOR TO CASE IV DRIP
     Route: 041
     Dates: start: 20120806, end: 20120806

REACTIONS (4)
  - IMMEDIATE POST-INJECTION REACTION [None]
  - DYSPNOEA [None]
  - PRURITUS [None]
  - CARDIAC ARREST [None]
